FAERS Safety Report 13130685 (Version 1)
Quarter: 2017Q1

REPORT INFORMATION
  Report Type: Spontaneous
  Country: US (occurrence: US)
  Receive Date: 20170114
  Receipt Date: 20170114
  Transmission Date: 20170428
  Serious: Yes (Other)
  Sender: FDA-Public Use
  Company Number: None

PATIENT
  Age: 45 Year
  Weight: 42.75 kg

DRUGS (2)
  1. COLD EEZE COLD REMEDYZN LOZENGES [Suspect]
     Active Substance: ZINC GLUCONATE
     Indication: COUGH
     Dosage: ORAL Q2-4HRS?
     Route: 048
     Dates: start: 20170112, end: 20170113
  2. COLD EEZE COLD REMEDYZN LOZENGES [Suspect]
     Active Substance: ZINC GLUCONATE
     Indication: NASOPHARYNGITIS
     Dosage: ORAL Q2-4HRS?
     Route: 048
     Dates: start: 20170112, end: 20170113

REACTIONS (1)
  - Ageusia [None]

NARRATIVE: CASE EVENT DATE: 20170113
